FAERS Safety Report 4892822-8 (Version None)
Quarter: 2005Q4

REPORT INFORMATION
  Report Type: 
  Country: None (occurrence: None)
  Receive Date: 20051220
  Receipt Date: 20050831
  Transmission Date: 20060501
  Serious: Yes (Other)
  Sender: FDA-Public Use
  Company Number: 416335

PATIENT
  Sex: Female

DRUGS (1)
  1. BONIVA [Suspect]
     Dates: start: 20050818

REACTIONS (2)
  - BURNING SENSATION [None]
  - OESOPHAGEAL OEDEMA [None]
